FAERS Safety Report 8769937 (Version 1)
Quarter: 2012Q4

REPORT INFORMATION
  Report Type: 
  Country: US (occurrence: US)
  Receive Date: 20120906
  Receipt Date: 20120906
  Transmission Date: 20130627
  Serious: Yes (Life-Threatening, Hospitalization, Disabling, Other)
  Sender: FDA-Public Use
  Company Number: US-ELI_LILLY_AND_COMPANY-US201208009635

PATIENT
  Age: 58 Year

DRUGS (4)
  1. HUMULIN [Suspect]
     Indication: DIABETES MELLITUS
     Dosage: UNK
     Dates: start: 1992
  2. PLAVIX [Concomitant]
  3. LOVASTATIN [Concomitant]
  4. ENAPRIL [Concomitant]

REACTIONS (5)
  - Cardioversion [Recovered/Resolved]
  - Localised infection [Recovered/Resolved with Sequelae]
  - Stent placement [Recovered/Resolved]
  - Loss of consciousness [Unknown]
  - Leg amputation [None]
